FAERS Safety Report 20114490 (Version 1)
Quarter: 2021Q4

REPORT INFORMATION
  Report Type: Spontaneous
  Country: US (occurrence: US)
  Receive Date: 20211125
  Receipt Date: 20211125
  Transmission Date: 20220303
  Serious: No
  Sender: FDA-Public Use
  Company Number: US-SA-SAC20211117001428

PATIENT
  Age: 18 Year
  Sex: Female

DRUGS (4)
  1. CABLIVI [Suspect]
     Active Substance: CAPLACIZUMAB-YHDP
     Indication: Haemolytic anaemia
     Dosage: 11 MG; QD
     Route: 058
     Dates: start: 20211028
  2. CABLIVI [Suspect]
     Active Substance: CAPLACIZUMAB-YHDP
     Indication: Haemolytic anaemia
     Dosage: 11 MG; QD
     Route: 058
     Dates: start: 20211028
  3. CABLIVI [Suspect]
     Active Substance: CAPLACIZUMAB-YHDP
     Indication: Haemolytic anaemia
     Dosage: 11 MG; QD
     Route: 058
     Dates: start: 20211028
  4. CABLIVI [Suspect]
     Active Substance: CAPLACIZUMAB-YHDP
     Indication: Haemolytic anaemia
     Dosage: 11 MG; QD
     Route: 058
     Dates: start: 20211028

REACTIONS (2)
  - Injection site bruising [Unknown]
  - Product use in unapproved indication [Unknown]

NARRATIVE: CASE EVENT DATE: 20210101
